FAERS Safety Report 10050910 (Version 4)
Quarter: 2016Q3

REPORT INFORMATION
  Report Type: Report from Study
  Country: JP (occurrence: JP)
  Receive Date: 20140401
  Receipt Date: 20160714
  Transmission Date: 20161108
  Serious: No
  Sender: FDA-Public Use
  Company Number: JP-JNJFOC-20131201554

PATIENT
  Age: 38 Year
  Sex: Male
  Weight: 96 kg

DRUGS (14)
  1. STELARA [Suspect]
     Active Substance: USTEKINUMAB
     Indication: PSORIASIS
     Route: 058
     Dates: start: 20130828, end: 20130828
  2. ISCOTIN [Suspect]
     Active Substance: ISONIAZID
     Indication: PROPHYLAXIS
     Route: 048
     Dates: start: 20121031, end: 20130828
  3. BEZATOL SR [Concomitant]
     Active Substance: BEZAFIBRATE
     Route: 048
  4. CHOLEBINE [Concomitant]
     Active Substance: COLESTILAN CHLORIDE
     Route: 048
  5. STELARA [Suspect]
     Active Substance: USTEKINUMAB
     Indication: PSORIASIS
     Route: 058
     Dates: start: 20130605, end: 20130605
  6. STELARA [Suspect]
     Active Substance: USTEKINUMAB
     Indication: PSORIASIS
     Route: 058
     Dates: start: 20121121, end: 20121121
  7. OXAROL [Concomitant]
     Active Substance: MAXACALCITOL
     Indication: PSORIASIS
     Route: 061
     Dates: end: 20130703
  8. ANTEBATE [Concomitant]
     Active Substance: BETAMETHASONE DIPROPIONATE
     Indication: PSORIASIS
     Route: 061
     Dates: end: 20130703
  9. EPADEL [Concomitant]
     Active Substance: ICOSAPENT
     Route: 048
  10. PROTOPIC [Concomitant]
     Active Substance: TACROLIMUS
     Indication: PSORIASIS
     Route: 061
     Dates: end: 20130703
  11. STELARA [Suspect]
     Active Substance: USTEKINUMAB
     Indication: PSORIASIS
     Route: 058
     Dates: start: 20121219, end: 20121219
  12. STELARA [Suspect]
     Active Substance: USTEKINUMAB
     Indication: PSORIASIS
     Route: 058
     Dates: start: 20131120
  13. STELARA [Suspect]
     Active Substance: USTEKINUMAB
     Indication: PSORIASIS
     Route: 058
     Dates: start: 20130313, end: 20130313
  14. NEORAL [Concomitant]
     Active Substance: CYCLOSPORINE
     Indication: PSORIASIS
     Route: 048
     Dates: end: 20121226

REACTIONS (2)
  - Liver function test abnormal [Recovered/Resolved]
  - Abdominal pain [Recovered/Resolved]

NARRATIVE: CASE EVENT DATE: 20130313
